FAERS Safety Report 5179047-6 (Version None)
Quarter: 2006Q4

REPORT INFORMATION
  Report Type: 
  Country: None (occurrence: None)
  Receive Date: 20061208
  Receipt Date: 20061129
  Transmission Date: 20070319
  Serious: Yes (Death, Disabling)
  Sender: FDA-Public Use
  Company Number: 30623

PATIENT
  Age: 90 Year
  Sex: Male

DRUGS (3)
  1. TAMBOCOR [Suspect]
     Indication: ATRIAL FIBRILLATION
     Dosage: 200 MG (100 MG, 2 IN 1 DAY (S), ORAL
     Route: 048
     Dates: start: 19910101, end: 20061101
  2. ASAFLOW [Concomitant]
  3. VITAMIN B COMPLEX CAP [Concomitant]

REACTIONS (4)
  - CARDIAC FAILURE [None]
  - FALL [None]
  - GAIT DISTURBANCE [None]
  - POLYNEUROPATHY [None]
